FAERS Safety Report 4689049-1 (Version None)
Quarter: 2005Q2

REPORT INFORMATION
  Report Type: 
  Country: None (occurrence: None)
  Receive Date: 20050613
  Receipt Date: 20050601
  Transmission Date: 20051028
  Serious: Yes (Hospitalization)
  Sender: FDA-Public Use
  Company Number: BE-BRISTOL-MYERS SQUIBB COMPANY-12991501

PATIENT
  Sex: Female

DRUGS (6)
  1. REYATAZ [Suspect]
     Route: 048
  2. VIDEX [Concomitant]
  3. VIREAD [Concomitant]
  4. NORVIR [Concomitant]
  5. LIPANTHYL [Concomitant]
  6. ASAFLOW [Concomitant]

REACTIONS (1)
  - HAEMATURIA [None]
